FAERS Safety Report 12506631 (Version 1)
Quarter: 2016Q2

REPORT INFORMATION
  Report Type: Spontaneous
  Country: US (occurrence: US)
  Receive Date: 20160628
  Receipt Date: 20160628
  Transmission Date: 20160815
  Serious: Yes (Hospitalization)
  Sender: FDA-Public Use
  Company Number: US-CTI_01934_2016

PATIENT
  Age: 60 Year
  Sex: Female

DRUGS (1)
  1. BETHKIS [Suspect]
     Active Substance: TOBRAMYCIN
     Indication: BREAST CANCER FEMALE
     Dosage: 300 MG/4 ML; 2 VIALS,  BID
     Route: 055
     Dates: start: 201511

REACTIONS (3)
  - Product use issue [Unknown]
  - Ill-defined disorder [Unknown]
  - Drug dose omission [Unknown]

NARRATIVE: CASE EVENT DATE: 201511
